FAERS Safety Report 12790074 (Version 2)
Quarter: 2016Q4

REPORT INFORMATION
  Report Type: Spontaneous
  Country: JP (occurrence: JP)
  Receive Date: 20160928
  Receipt Date: 20161011
  Transmission Date: 20170207
  Serious: Yes (Hospitalization, Other)
  Sender: FDA-Public Use
  Company Number: JP-CELGENEUS-JPN-2016094972

PATIENT
  Age: 73 Year
  Sex: Male

DRUGS (6)
  1. VIDAZA [Suspect]
     Active Substance: AZACITIDINE
     Indication: PRODUCT USED FOR UNKNOWN INDICATION
     Dosage: 75 MILLIGRAM/SQ. METER
     Route: 065
     Dates: start: 20160511, end: 20160915
  2. NIFEDIPINE. [Concomitant]
     Active Substance: NIFEDIPINE
     Indication: PRODUCT USED FOR UNKNOWN INDICATION
     Route: 065
  3. ARTIST [Concomitant]
     Active Substance: CARVEDILOL
     Indication: PRODUCT USED FOR UNKNOWN INDICATION
     Route: 065
  4. ITRIZOLE [Concomitant]
     Active Substance: ITRACONAZOLE
     Indication: PRODUCT USED FOR UNKNOWN INDICATION
     Route: 065
  5. CRAVIT [Concomitant]
     Active Substance: LEVOFLOXACIN
     Indication: PRODUCT USED FOR UNKNOWN INDICATION
     Route: 065
  6. ASPARA K [Concomitant]
     Active Substance: POTASSIUM ASPARTATE
     Indication: PRODUCT USED FOR UNKNOWN INDICATION
     Route: 065

REACTIONS (1)
  - Ventricular tachycardia [Recovering/Resolving]

NARRATIVE: CASE EVENT DATE: 20160728
